FAERS Safety Report 18117766 (Version 2)
Quarter: 2021Q1

REPORT INFORMATION
  Report Type: Spontaneous
  Country: MT (occurrence: MT)
  Receive Date: 20200806
  Receipt Date: 20210303
  Transmission Date: 20210419
  Serious: Yes (Hospitalization, Other)
  Sender: FDA-Public Use
  Company Number: MT-LUPIN PHARMACEUTICALS INC.-2020-04091

PATIENT
  Age: 11 Day
  Sex: Male

DRUGS (1)
  1. MOXIFLOXACIN HYDROCHLORIDE. [Suspect]
     Active Substance: MOXIFLOXACIN HYDROCHLORIDE
     Indication: EYE DISCHARGE
     Dosage: UNK, OPHTHALMIC SOLUTION
     Route: 047

REACTIONS (2)
  - Conjunctivitis [Recovered/Resolved]
  - Conjunctival haemorrhage [Recovered/Resolved]
